FAERS Safety Report 6219964-9 (Version None)
Quarter: 2009Q2

REPORT INFORMATION
  Report Type: 
  Country: None (occurrence: None)
  Receive Date: 20090609
  Receipt Date: 20090603
  Transmission Date: 20091009
  Serious: Yes (Death)
  Sender: FDA-Public Use
  Company Number: US-GILEAD-2009-0022405

PATIENT
  Sex: Female
  Weight: 96.702 kg

DRUGS (22)
  1. LETAIRIS [Suspect]
     Indication: PULMONARY ARTERIAL HYPERTENSION
     Route: 048
     Dates: start: 20070807
  2. REVATIO [Concomitant]
     Dates: start: 20051004
  3. VENTAVIS [Concomitant]
     Dates: start: 20060410
  4. VIAGRA [Concomitant]
  5. OXYGEN [Concomitant]
  6. COUMADIN [Concomitant]
  7. PLAVIX [Concomitant]
  8. LASIX [Concomitant]
  9. ALDACTONE [Concomitant]
  10. LOPRESSOR [Concomitant]
  11. ALTACE [Concomitant]
  12. FLONASE [Concomitant]
  13. K-DUR [Concomitant]
  14. PREDNISONE [Concomitant]
  15. CLARITIN [Concomitant]
  16. NEXIUM [Concomitant]
  17. ROCEPHIN [Concomitant]
  18. AUGMENTIN [Concomitant]
     Dates: start: 20090407
  19. PROZAC [Concomitant]
  20. VITAMIN [Concomitant]
  21. DETROL LA [Concomitant]
  22. PERCOCET [Concomitant]
     Dates: start: 20090407

REACTIONS (1)
  - DEATH [None]
